FAERS Safety Report 9751563 (Version 1)
Quarter: 2013Q4

REPORT INFORMATION
  Report Type: Report from Study
  Country: US (occurrence: US)
  Receive Date: 20131212
  Receipt Date: 20131212
  Transmission Date: 20140711
  Serious: Yes (Other)
  Sender: FDA-Public Use
  Company Number: US-ABBVIE-13P-163-1175255-00

PATIENT
  Age: 56 Year
  Sex: Female
  Weight: 79.45 kg

DRUGS (3)
  1. HUMIRA [Suspect]
     Indication: RHEUMATOID ARTHRITIS
  2. IBUPROFEN [Concomitant]
     Indication: PRODUCT USED FOR UNKNOWN INDICATION
     Dosage: OCCASIONALLY
  3. FLU VACCINE [Concomitant]
     Indication: ANTIVIRAL PROPHYLAXIS
     Dates: start: 2013, end: 2013

REACTIONS (7)
  - Tooth deposit [Recovered/Resolved]
  - Arthritis [Not Recovered/Not Resolved]
  - Nasopharyngitis [Recovered/Resolved]
  - Pyrexia [Recovered/Resolved]
  - Influenza like illness [Recovered/Resolved]
  - Blood cholesterol increased [Not Recovered/Not Resolved]
  - Depression [Not Recovered/Not Resolved]
